FAERS Safety Report 15757017 (Version 1)
Quarter: 2018Q4

REPORT INFORMATION
  Report Type: Report from Study
  Country: ES (occurrence: ES)
  Receive Date: 20181224
  Receipt Date: 20181224
  Transmission Date: 20190205
  Serious: Yes (Death, Hospitalization)
  Sender: FDA-Public Use
  Company Number: ES-PFIZER INC-2018508826

PATIENT
  Age: 71 Year
  Sex: Male
  Weight: 80 kg

DRUGS (5)
  1. BLINDED AXITINIB [Suspect]
     Active Substance: AXITINIB
     Indication: NEUROENDOCRINE CARCINOMA
     Dosage: 5 MG, 2X/DAY (EVERY12 H)
     Route: 048
     Dates: start: 20180214, end: 20181206
  2. FENTANILO [FENTANYL] [Concomitant]
     Dosage: UNK
  3. BLINDED PLACEBO [Suspect]
     Active Substance: INVESTIGATIONAL PRODUCT
     Indication: NEUROENDOCRINE CARCINOMA
     Dosage: 5 MG, 2X/DAY (EVERY12 H)
     Route: 048
     Dates: start: 20180214, end: 20181206
  4. SANDOSTATIN LAR DEPOT [Suspect]
     Active Substance: OCTREOTIDE ACETATE
     Indication: NEUROENDOCRINE CARCINOMA
     Dosage: 30 MG, EVERY 28 DAYS
     Route: 030
     Dates: start: 20180214, end: 20181121
  5. MORPHINE [Concomitant]
     Active Substance: MORPHINE
     Dosage: 20 MG, UNK

REACTIONS (2)
  - Encephalopathy [Not Recovered/Not Resolved]
  - Hepatorenal syndrome [Fatal]

NARRATIVE: CASE EVENT DATE: 20181206
